FAERS Safety Report 25886781 (Version 1)
Quarter: 2025Q4

REPORT INFORMATION
  Report Type: Spontaneous
  Country: US (occurrence: None)
  Receive Date: 20251006
  Receipt Date: 20251006
  Transmission Date: 20260117
  Serious: Yes (Other)
  Sender: FDA-CTU
  Company Number: None

PATIENT
  Sex: Female

DRUGS (1)
  1. MONISTAT 1 COMBINATION PACK [Suspect]
     Active Substance: MICONAZOLE NITRATE
     Dates: start: 20251005

REACTIONS (4)
  - Application site pain [None]
  - Application site pruritus [None]
  - Sleep disorder [None]
  - Scratch [None]

NARRATIVE: CASE EVENT DATE: 20251005
